FAERS Safety Report 8182426-6 (Version None)
Quarter: 2012Q1

REPORT INFORMATION
  Report Type: 
  Country: None (occurrence: None)
  Receive Date: 20120305
  Receipt Date: 20120221
  Transmission Date: 20120608
  Serious: Yes (Disabling)
  Sender: FDA-Public Use
  Company Number: DK-GE HEALTHCARE MEDICAL DIAGNOSTICS-OSCN-NO-0701S-0041

PATIENT
  Sex: Male
  Weight: 142 kg

DRUGS (2)
  1. OMNISCAN [Suspect]
     Indication: DIAGNOSTIC PROCEDURE
  2. OMNISCAN [Suspect]
     Indication: COMPLICATIONS OF TRANSPLANTED KIDNEY
     Route: 042
     Dates: start: 20030415, end: 20030415

REACTIONS (8)
  - PAIN IN EXTREMITY [None]
  - PRURITUS [None]
  - ACTIVITIES OF DAILY LIVING IMPAIRED [None]
  - NEPHROGENIC SYSTEMIC FIBROSIS [None]
  - SKIN DISORDER [None]
  - NEUROPATHY PERIPHERAL [None]
  - PERIPHERAL SENSORY NEUROPATHY [None]
  - JOINT CONTRACTURE [None]
